FAERS Safety Report 4397031-7 (Version None)
Quarter: 2004Q3

REPORT INFORMATION
  Report Type: 
  Country: None (occurrence: None)
  Receive Date: 20040714
  Receipt Date: 20040705
  Transmission Date: 20050211
  Serious: Yes (Other)
  Sender: FDA-Public Use
  Company Number: PHNR2004AU01186

PATIENT
  Age: 55 Year
  Sex: Female
  Weight: 54 kg

DRUGS (3)
  1. COMBIPATCH [Suspect]
     Indication: MENOPAUSAL SYMPTOMS
     Route: 062
     Dates: start: 20010518, end: 20010618
  2. LIVIAL [Suspect]
     Indication: MENOPAUSAL SYMPTOMS
     Dosage: 2.5 MG, QD
     Route: 048
     Dates: start: 20010531, end: 20020621
  3. CLIMARA [Suspect]
     Indication: MENOPAUSAL SYMPTOMS
     Route: 062
     Dates: end: 20010410

REACTIONS (1)
  - GASTROINTESTINAL CARCINOMA [None]
